FAERS Safety Report 6411086-7 (Version None)
Quarter: 2009Q4

REPORT INFORMATION
  Report Type: 
  Country: None (occurrence: None)
  Receive Date: 20091020
  Receipt Date: 20091007
  Transmission Date: 20100525
  Serious: Yes (Hospitalization)
  Sender: FDA-Public Use
  Company Number: CERZ-1000967

PATIENT
  Age: 55 Year
  Sex: Female
  Weight: 57.7 kg

DRUGS (1)
  1. CEREZYME [Suspect]
     Indication: GAUCHER'S DISEASE
     Dosage: 1800 U, Q2E, INTRAVENOUS
     Route: 042

REACTIONS (2)
  - ABNORMAL BEHAVIOUR [None]
  - BACK PAIN [None]
